FAERS Safety Report 17969428 (Version 1)
Quarter: 2020Q3

REPORT INFORMATION
  Report Type: Spontaneous
  Country: TW (occurrence: TW)
  Receive Date: 20200701
  Receipt Date: 20200701
  Transmission Date: 20201103
  Serious: Yes (Other)
  Sender: FDA-Public Use
  Company Number: TW-PFIZER INC-2020249117

PATIENT
  Age: 51 Year
  Sex: Female

DRUGS (2)
  1. LORLATINIB [Suspect]
     Active Substance: LORLATINIB
     Indication: NON-SMALL CELL LUNG CANCER STAGE IIIB
     Dosage: UNK
     Dates: start: 20191113
  2. NAVELBINE [Concomitant]
     Active Substance: VINORELBINE TARTRATE
     Dosage: UNK

REACTIONS (14)
  - Dizziness [Unknown]
  - Blood cholesterol increased [Unknown]
  - Cranial nerve paralysis [Unknown]
  - Neoplasm progression [Unknown]
  - Hypoaesthesia [Unknown]
  - Pain in extremity [Unknown]
  - Haemoptysis [Unknown]
  - Central nervous system lesion [Unknown]
  - Dyspnoea [Unknown]
  - Hyponatraemia [Unknown]
  - Low density lipoprotein increased [Unknown]
  - Vision blurred [Unknown]
  - Inappropriate antidiuretic hormone secretion [Unknown]
  - Diarrhoea [Unknown]

NARRATIVE: CASE EVENT DATE: 20191203
